FAERS Safety Report 11102234 (Version 1)
Quarter: 2015Q2

REPORT INFORMATION
  Report Type: Spontaneous
  Country: US (occurrence: US)
  Receive Date: 20150511
  Receipt Date: 20150511
  Transmission Date: 20150821
  Serious: Yes (Other)
  Sender: FDA-Public Use
  Company Number: US-009507513-1505USA003195

PATIENT
  Age: 54 Year
  Sex: Female
  Weight: 69.84 kg

DRUGS (5)
  1. SOVALDI [Suspect]
     Active Substance: SOFOSBUVIR
     Indication: HEPATITIS C
     Dosage: 400 MG, UNKNOWN
     Route: 048
     Dates: start: 20150109, end: 20150403
  2. REBETOL [Suspect]
     Active Substance: RIBAVIRIN
     Dosage: LOWERED TO 2 DF, BID
     Route: 048
     Dates: start: 20150310, end: 20150403
  3. BACTRIM [Concomitant]
     Active Substance: SULFAMETHOXAZOLE\TRIMETHOPRIM
     Dosage: UNK
  4. ATRIPLA [Suspect]
     Active Substance: EFAVIRENZ\EMTRICITABINE\TENOFOVIR DISOPROXIL FUMARATE
     Indication: HIV INFECTION
     Dosage: 1 DF, QD
     Route: 048
  5. REBETOL [Suspect]
     Active Substance: RIBAVIRIN
     Indication: HEPATITIS C
     Dosage: 600/400(UNIT NOT PROVIDED)
     Route: 048
     Dates: start: 20150109, end: 20150309

REACTIONS (3)
  - Anaemia [Recovered/Resolved]
  - Mesenteric panniculitis [Recovered/Resolved]
  - Abdominal pain [Recovered/Resolved]

NARRATIVE: CASE EVENT DATE: 20150317
